FAERS Safety Report 7320327-3 (Version None)
Quarter: 2011Q1

REPORT INFORMATION
  Report Type: 
  Country: None (occurrence: None)
  Receive Date: 20110228
  Receipt Date: 20110217
  Transmission Date: 20110831
  Serious: Yes (Other)
  Sender: FDA-Public Use
  Company Number: BE-WATSON-2011-01154

PATIENT
  Age: 60 Year
  Sex: Female

DRUGS (1)
  1. OMEPRAZOLE [Suspect]
     Indication: GASTRIC DISORDER
     Dosage: 20 MG, UNKNOWN
     Route: 065
     Dates: start: 20081001

REACTIONS (1)
  - LEUKOCYTOCLASTIC VASCULITIS [None]
